FAERS Safety Report 10689529 (Version 1)
Quarter: 2015Q1

REPORT INFORMATION
  Report Type: Spontaneous
  Country: US (occurrence: US)
  Receive Date: 20150105
  Receipt Date: 20150105
  Transmission Date: 20150720
  Serious: No
  Sender: FDA-Public Use
  Company Number: US-PFIZER INC-2014349780

PATIENT
  Age: 4 Year
  Sex: Male

DRUGS (1)
  1. PROTONIX [Suspect]
     Active Substance: PANTOPRAZOLE SODIUM
     Dosage: 20 MG
     Route: 042
     Dates: start: 20141213, end: 20141213

REACTIONS (1)
  - Drug screen positive [Unknown]

NARRATIVE: CASE EVENT DATE: 20141215
